FAERS Safety Report 22152347 (Version 1)
Quarter: 2023Q1

REPORT INFORMATION
  Report Type: Report from Study
  Country: DE (occurrence: DE)
  Receive Date: 20230329
  Receipt Date: 20230329
  Transmission Date: 20230418
  Serious: Yes (Other)
  Sender: FDA-Public Use
  Company Number: DE-TAKEDA-2023TUS032551

PATIENT
  Age: 39 Year
  Sex: Male

DRUGS (1)
  1. LANADELUMAB [Suspect]
     Active Substance: LANADELUMAB
     Indication: Hereditary angioedema
     Dosage: 300 MILLIGRAM, Q4WEEKS
     Route: 058

REACTIONS (3)
  - Thrombosis [Not Recovered/Not Resolved]
  - Muscle strain [Not Recovered/Not Resolved]
  - Sports injury [Not Recovered/Not Resolved]

NARRATIVE: CASE EVENT DATE: 20230324
